FAERS Safety Report 9050693 (Version 2)
Quarter: 2013Q2

REPORT INFORMATION
  Report Type: Spontaneous
  Country: US (occurrence: US)
  Receive Date: 20130205
  Receipt Date: 20130411
  Transmission Date: 20140414
  Serious: No
  Sender: FDA-Public Use
  Company Number: US-009507513-1302USA001535

PATIENT
  Age: 27 Year
  Sex: Female
  Weight: 49.89 kg

DRUGS (6)
  1. MIRALAX [Suspect]
     Indication: CONSTIPATION
     Dosage: 17 G, QD
     Route: 048
     Dates: start: 20130106, end: 20130213
  2. MIRALAX [Suspect]
     Indication: MEDICAL OBSERVATION
  3. BENEFIBER [Concomitant]
     Indication: CONSTIPATION
  4. EX-LAX (NEW FORMULA) [Concomitant]
     Indication: CONSTIPATION
  5. PREPARATION H HYDROCORTISONE 1% [Concomitant]
     Indication: HAEMORRHOIDS
  6. METAMUCIL FIBER-SURE [Concomitant]
     Indication: CONSTIPATION

REACTIONS (2)
  - Incorrect drug administration duration [Unknown]
  - Drug effect decreased [Unknown]
